FAERS Safety Report 5553094-4 (Version None)
Quarter: 2007Q4

REPORT INFORMATION
  Report Type: 
  Country: None (occurrence: None)
  Receive Date: 20071211
  Receipt Date: 20071130
  Transmission Date: 20080405
  Serious: Yes (Other)
  Sender: FDA-Public Use
  Company Number: WAES 0712USA00998

PATIENT
  Age: 70 Year
  Sex: Male
  Weight: 87.9978 kg

DRUGS (6)
  1. CAP VORINOSTAT 100 MG [Suspect]
     Indication: MULTIPLE MYELOMA
     Dosage: 400 MG DAILY PO
     Route: 048
     Dates: start: 20071016
  2. VELCADE [Suspect]
     Indication: MULTIPLE MYELOMA
     Dosage: 1.3 MG/M[2] DAILY IV
     Route: 042
     Dates: start: 20071016
  3. DULCOLAX [Concomitant]
  4. VALTREX [Concomitant]
  5. ZOFRAN [Concomitant]
  6. HYDROCODONE BITARTRATE [Concomitant]

REACTIONS (2)
  - CONJUNCTIVITIS [None]
  - DRUG PRESCRIBING ERROR [None]
